FAERS Safety Report 19798658 (Version 1)
Quarter: 2021Q3

REPORT INFORMATION
  Report Type: Spontaneous
  Country: US (occurrence: US)
  Receive Date: 20210907
  Receipt Date: 20210907
  Transmission Date: 20211014
  Serious: No
  Sender: FDA-Public Use
  Company Number: None

PATIENT
  Age: 37 Year
  Sex: Female
  Weight: 69.75 kg

DRUGS (3)
  1. MYORISAN [Suspect]
     Active Substance: ISOTRETINOIN
     Indication: ACNE
     Dosage: ?          QUANTITY:1 CAPSULE(S);?
     Route: 048
     Dates: start: 20210901, end: 20210906
  2. ZOLOFT [Concomitant]
     Active Substance: SERTRALINE HYDROCHLORIDE
  3. LILETTA [Concomitant]
     Active Substance: LEVONORGESTREL

REACTIONS (4)
  - Mental disorder [None]
  - Suicidal ideation [None]
  - Depression [None]
  - Hypersensitivity [None]

NARRATIVE: CASE EVENT DATE: 20210906
